FAERS Safety Report 4526357-9 (Version None)
Quarter: 2004Q4

REPORT INFORMATION
  Report Type: 
  Country: None (occurrence: None)
  Receive Date: 20041213
  Receipt Date: 20041207
  Transmission Date: 20050328
  Serious: Yes (Disabling, Other)
  Sender: FDA-Public Use
  Company Number: HQWYE778707DEC04

PATIENT
  Age: 75 Year
  Sex: Female

DRUGS (5)
  1. CORDARONE [Suspect]
     Indication: SUPRAVENTRICULAR EXTRASYSTOLES
     Dosage: 200 MG 1X PER 1 DAY ORAL
     Route: 048
     Dates: start: 20040804, end: 20041006
  2. ISOPTIN [Concomitant]
  3. DIAFUSOR (GLYCERYL TRINITRATE) [Concomitant]
  4. SEREVENT [Concomitant]
  5. BECLOMETHASONE DIPROPIONATE [Concomitant]

REACTIONS (2)
  - ASTHMA [None]
  - CONDITION AGGRAVATED [None]
